FAERS Safety Report 9937293 (Version 1)
Quarter: 2014Q1

REPORT INFORMATION
  Report Type: Spontaneous
  Country: US (occurrence: US)
  Receive Date: 20140302
  Receipt Date: 20140302
  Transmission Date: 20141002
  Serious: No
  Sender: FDA-Public Use
  Company Number: US-TEVA-465053USA

PATIENT
  Age: 78 Year
  Sex: Male

DRUGS (2)
  1. PROAIR HFA [Suspect]
     Indication: COUGH
     Dates: start: 201401
  2. FLUTICASONE [Concomitant]
     Indication: RHINORRHOEA

REACTIONS (1)
  - Drug ineffective [Recovered/Resolved]
